FAERS Safety Report 6269628-0 (Version None)
Quarter: 2009Q3

REPORT INFORMATION
  Report Type: 
  Country: None (occurrence: None)
  Receive Date: 20090715
  Receipt Date: 20090710
  Transmission Date: 20100115
  Serious: Yes (Disabling)
  Sender: FDA-Public Use
  Company Number: DK-ABBOTT-08P-044-0444826-00

PATIENT
  Sex: Female
  Weight: 50 kg

DRUGS (4)
  1. HUMIRA [Suspect]
     Indication: CROHN'S DISEASE
     Dosage: 160 MG WEEK ONE
     Route: 058
     Dates: start: 20071127
  2. HUMIRA [Suspect]
     Dosage: 80 MG WEEK TWO
     Route: 058
     Dates: end: 20080211
  3. B-12 VITAMIN [Concomitant]
     Indication: DRUG USE FOR UNKNOWN INDICATION
     Dosage: EVERY THREE MONTHS
     Route: 050
  4. MULTI-VITAMIN [Concomitant]
     Indication: DRUG USE FOR UNKNOWN INDICATION

REACTIONS (3)
  - BLINDNESS [None]
  - CHORIORETINITIS [None]
  - TOXOPLASMOSIS [None]
